FAERS Safety Report 14603406 (Version 1)
Quarter: 2018Q1

REPORT INFORMATION
  Report Type: Spontaneous
  Country: US (occurrence: US)
  Receive Date: 20180305
  Receipt Date: 20180305
  Transmission Date: 20180509
  Serious: Yes (Congenital Anomaly)
  Sender: FDA-Public Use
  Company Number: None

PATIENT
  Age: 20 Year
  Sex: Female
  Weight: 76.5 kg

DRUGS (1)
  1. ORTHO TRI CYCLEN LO [Suspect]
     Active Substance: ETHINYL ESTRADIOL\NORGESTIMATE
     Indication: CONTRACEPTION
     Dates: start: 20170807, end: 20171113

REACTIONS (5)
  - Limb reduction defect [None]
  - Maternal drugs affecting foetus [None]
  - Maternal exposure during pregnancy [None]
  - Pregnancy on oral contraceptive [None]
  - Cardiac murmur [None]

NARRATIVE: CASE EVENT DATE: 20171111
